FAERS Safety Report 10004254 (Version 2)
Quarter: 2014Q2

REPORT INFORMATION
  Report Type: Spontaneous
  Country: US (occurrence: US)
  Receive Date: 20140312
  Receipt Date: 20140502
  Transmission Date: 20141212
  Serious: No
  Sender: FDA-Public Use
  Company Number: US-PFIZER INC-2014072281

PATIENT
  Age: 69 Year
  Sex: Male

DRUGS (5)
  1. CELEBREX [Suspect]
     Indication: ARTHRITIS
     Dosage: 200 MG, 1X/DAY
     Dates: start: 201403
  2. SIMVASTATIN [Concomitant]
     Dosage: 20MG
  3. BENAZEPRIL [Concomitant]
     Dosage: 20 MG
  4. ZOLPIDEM [Concomitant]
     Dosage: 10 MG
  5. ASPIRIN [Concomitant]
     Dosage: 81 MG, DAILY

REACTIONS (1)
  - Drug ineffective [Unknown]
